FAERS Safety Report 10245096 (Version 1)
Quarter: 2014Q2

REPORT INFORMATION
  Report Type: Spontaneous
  Country: US (occurrence: US)
  Receive Date: 20140618
  Receipt Date: 20140618
  Transmission Date: 20141212
  Serious: No
  Sender: FDA-Public Use
  Company Number: US-PFIZER INC-2014166743

PATIENT
  Age: 75 Year
  Sex: Female
  Weight: 78.91 kg

DRUGS (2)
  1. EFFEXOR XR [Suspect]
     Indication: DEPRESSION
     Dosage: 150 MG, DAILY
  2. DEPAKOTE [Concomitant]
     Indication: BIPOLAR DISORDER
     Dosage: 750 MG, DAILY

REACTIONS (4)
  - Drug withdrawal syndrome [Unknown]
  - Activities of daily living impaired [Unknown]
  - Insomnia [Unknown]
  - Feeling abnormal [Unknown]
